FAERS Safety Report 15600596 (Version 1)
Quarter: 2018Q4

REPORT INFORMATION
  Report Type: Spontaneous
  Country: US (occurrence: US)
  Receive Date: 20181109
  Receipt Date: 20181109
  Transmission Date: 20190205
  Serious: No
  Sender: FDA-Public Use
  Company Number: US-AUROBINDO-AUR-APU-2018-031802

PATIENT
  Sex: Female

DRUGS (1)
  1. RIBAVIRIN TABLETS 200MG [Suspect]
     Active Substance: RIBAVIRIN
     Indication: HEPATITIS C
     Dosage: UNK, TWO TIMES A DAY
     Route: 065

REACTIONS (2)
  - Vision blurred [Unknown]
  - Photophobia [Unknown]
